FAERS Safety Report 7808954-8 (Version None)
Quarter: 2011Q4

REPORT INFORMATION
  Report Type: 
  Country: None (occurrence: None)
  Receive Date: 20111012
  Receipt Date: 20111006
  Transmission Date: 20120403
  Serious: Yes (Death, Life-Threatening, Hospitalization)
  Sender: FDA-Public Use
  Company Number: FR-BRISTOL-MYERS SQUIBB COMPANY-16100737

PATIENT
  Age: 84 Year
  Sex: Male

DRUGS (7)
  1. ATENOLOL [Suspect]
  2. ALPRAZOLAM [Concomitant]
     Dosage: 1DF=0.25MG,1.5 TABLET PER DAY
  3. FUROSEMIDE [Suspect]
  4. ENALAPRIL MALEATE [Suspect]
  5. ATORVASTATIN CALCIUM [Concomitant]
  6. ACETAMINOPHEN [Concomitant]
  7. COUMADIN [Suspect]
     Dosage: TABS
     Route: 048
     Dates: start: 20000101

REACTIONS (7)
  - INTERNATIONAL NORMALISED RATIO INCREASED [None]
  - RENAL FAILURE ACUTE [None]
  - HAEMATURIA [None]
  - SEPSIS [None]
  - HYPOTENSION [None]
  - VOLVULUS [None]
  - URINARY TRACT INFECTION [None]
